FAERS Safety Report 24194599 (Version 1)
Quarter: 2024Q3

REPORT INFORMATION
  Report Type: Spontaneous
  Country: DE (occurrence: DE)
  Receive Date: 20240809
  Receipt Date: 20240809
  Transmission Date: 20241017
  Serious: Yes (Other)
  Sender: BRISTOL MYERS SQUIBB
  Company Number: None

PATIENT
  Age: 65 Year
  Sex: Male
  Weight: 82 kg

DRUGS (2)
  1. ELIQUIS [Suspect]
     Active Substance: APIXABAN
     Indication: Deep vein thrombosis
     Dosage: 7 DAYS 2-0-2, THEN 1-0-1 5MG EACH
     Route: 048
     Dates: start: 20240706
  2. ELIQUIS [Suspect]
     Active Substance: APIXABAN
     Dosage: 7 DAYS 2-0-2, THEN 1-0-1 5MG EACH
     Route: 048

REACTIONS (4)
  - Blood pressure decreased [Recovering/Resolving]
  - Melaena [Recovering/Resolving]
  - Circulatory collapse [Unknown]
  - Gastric haemorrhage [Recovering/Resolving]

NARRATIVE: CASE EVENT DATE: 20240729
